FAERS Safety Report 8347513-8 (Version None)
Quarter: 2012Q2

REPORT INFORMATION
  Report Type: 
  Country: None (occurrence: None)
  Receive Date: 20120509
  Receipt Date: 20120502
  Transmission Date: 20120825
  Serious: Yes (Hospitalization)
  Sender: FDA-Public Use
  Company Number: BE-ASTRAZENECA-2012SE16593

PATIENT
  Age: 72 Year
  Sex: Female

DRUGS (6)
  1. DIURETICS [Concomitant]
  2. AINS [Concomitant]
  3. CRESTOR [Suspect]
     Route: 048
     Dates: start: 20110101
  4. LIPITOR [Concomitant]
     Dates: start: 20060101, end: 20070101
  5. ZESTORETIC [Suspect]
     Route: 048
  6. ZOCOR [Concomitant]
     Dates: start: 20030101, end: 20060101

REACTIONS (2)
  - INTESTINAL INFARCTION [None]
  - COLITIS ISCHAEMIC [None]
